FAERS Safety Report 13661864 (Version 1)
Quarter: 2017Q2

REPORT INFORMATION
  Report Type: Spontaneous
  Country: US (occurrence: US)
  Receive Date: 20170616
  Receipt Date: 20170616
  Transmission Date: 20170830
  Serious: No
  Sender: FDA-Public Use
  Company Number: US-ALLERGAN-1713839US

PATIENT
  Age: 8 Year
  Sex: Female
  Weight: 45.35 kg

DRUGS (1)
  1. CONDYLOX [Suspect]
     Active Substance: PODOFILOX
     Indication: MOLLUSCUM CONTAGIOSUM
     Dosage: UNK, QD
     Route: 061
     Dates: start: 201703, end: 201703

REACTIONS (2)
  - Off label use [Unknown]
  - Skin burning sensation [Recovered/Resolved]

NARRATIVE: CASE EVENT DATE: 201703
